FAERS Safety Report 19291274 (Version 2)
Quarter: 2021Q2

REPORT INFORMATION
  Report Type: Spontaneous
  Country: US (occurrence: US)
  Receive Date: 20210523
  Receipt Date: 20210602
  Transmission Date: 20210717
  Serious: No
  Sender: FDA-Public Use
  Company Number: US-GLAXOSMITHKLINE-US2021104474

PATIENT
  Sex: Female

DRUGS (2)
  1. ZEJULA [Suspect]
     Active Substance: NIRAPARIB
     Dosage: 100MG EVER OTHER DAY, ALTERNATING WITH 200MG EVERY OTHER DAY
     Route: 048
  2. ZEJULA [Suspect]
     Active Substance: NIRAPARIB
     Indication: MALIGNANT PERITONEAL NEOPLASM
     Dosage: 100 MG, QD
     Route: 048
     Dates: start: 20210420

REACTIONS (3)
  - Decreased appetite [Unknown]
  - Inappropriate schedule of product administration [Unknown]
  - Off label use [Unknown]
